FAERS Safety Report 17802043 (Version 4)
Quarter: 2025Q1

REPORT INFORMATION
  Report Type: Spontaneous
  Country: DE (occurrence: DE)
  Receive Date: 20200519
  Receipt Date: 20250204
  Transmission Date: 20250408
  Serious: Yes (Hospitalization, Other)
  Sender: NOVARTIS
  Company Number: None

PATIENT
  Sex: Female
  Weight: 63 kg

DRUGS (3)
  1. GILENYA [Suspect]
     Active Substance: FINGOLIMOD HYDROCHLORIDE
     Indication: Multiple sclerosis relapse
     Dosage: 0.5 MG, QD (TABLET)
     Route: 048
     Dates: start: 201505
  2. Spasmex [Concomitant]
     Indication: Urge incontinence
     Dosage: 30 MG, QD
     Route: 048
  3. EBASTINE [Concomitant]
     Active Substance: EBASTINE
     Indication: Product used for unknown indication
     Dosage: 10 MG, QD
     Route: 048

REACTIONS (8)
  - Squamous cell carcinoma of the vulva [Recovered/Resolved]
  - Urinary tract infection [Recovered/Resolved]
  - Pyrexia [Recovered/Resolved]
  - Hypotension [Recovered/Resolved]
  - Disease recurrence [Unknown]
  - Endometriosis [Unknown]
  - Abdominal discomfort [Unknown]
  - Hyperreactio luteinalis [Unknown]

NARRATIVE: CASE EVENT DATE: 20200226
